FAERS Safety Report 23636234 (Version 4)
Quarter: 2024Q2

REPORT INFORMATION
  Report Type: Spontaneous
  Country: CA (occurrence: CA)
  Receive Date: 20240315
  Receipt Date: 20240530
  Transmission Date: 20240715
  Serious: Yes (Other)
  Sender: FDA-Public Use
  Company Number: CA-Vifor Pharma-VIT-2023-09057

PATIENT
  Sex: Male
  Weight: 58 kg

DRUGS (12)
  1. KORSUVA [Suspect]
     Active Substance: DIFELIKEFALIN ACETATE
     Indication: Pruritus
     Dosage: DOSE: 0.6 ML (30 MCG, 3 IN 1 WK)
     Route: 040
     Dates: start: 20230629, end: 20231019
  2. FERRLECIT [Suspect]
     Active Substance: SODIUM FERRIC GLUCONATE COMPLEX
     Indication: Anaemia
     Dosage: 2.0833 MG (125 MG, 1 IN 2 M)
     Route: 042
  3. FERRLECIT [Suspect]
     Active Substance: SODIUM FERRIC GLUCONATE COMPLEX
     Route: 050
  4. ALLOPURINOL [Concomitant]
     Active Substance: ALLOPURINOL
     Indication: Gout
     Dosage: 1 DOSE
     Route: 048
     Dates: start: 20230313
  5. AMLODIPINE [Concomitant]
     Active Substance: AMLODIPINE BESYLATE
     Indication: Hypertension
     Dosage: (5 MG)
     Route: 048
     Dates: start: 202207, end: 202207
  6. AMLODIPINE [Concomitant]
     Active Substance: AMLODIPINE BESYLATE
     Indication: Hypertension
     Route: 050
     Dates: start: 202207
  7. CALCITRIOL [Concomitant]
     Active Substance: CALCITRIOL
     Indication: Hyperparathyroidism
     Dosage: 0.5 (3 IN 1 WK)
  8. CALCITRIOL [Concomitant]
     Active Substance: CALCITRIOL
     Dosage: 0.5
  9. COLACE [Concomitant]
     Active Substance: DOCUSATE SODIUM
     Indication: Constipation
     Dosage: 100 MG
     Route: 048
     Dates: start: 202307
  10. COLACE [Concomitant]
     Active Substance: DOCUSATE SODIUM
     Route: 050
     Dates: start: 202307
  11. VITAMIN D [Concomitant]
     Active Substance: VITAMIN D NOS
     Dosage: 1000 IU
     Route: 048
     Dates: start: 202107, end: 202107
  12. VITAMIN D [Concomitant]
     Active Substance: VITAMIN D NOS
     Route: 050
     Dates: start: 202107

REACTIONS (4)
  - Balance disorder [Recovered/Resolved]
  - Muscular weakness [Recovered/Resolved]
  - Fall [Recovered/Resolved]
  - Gait disturbance [Unknown]

NARRATIVE: CASE EVENT DATE: 20230101
